FAERS Safety Report 7532772-1 (Version None)
Quarter: 2011Q2

REPORT INFORMATION
  Report Type: 
  Country: None (occurrence: None)
  Receive Date: 20110608
  Receipt Date: 20110325
  Transmission Date: 20111010
  Serious: Yes (Hospitalization, Other)
  Sender: FDA-Public Use
  Company Number: B0708959A

PATIENT
  Sex: Female
  Weight: 65 kg

DRUGS (3)
  1. ABACAVIR SULFATE AND LAMIVUDINE [Suspect]
     Indication: HIV INFECTION
     Route: 048
     Dates: start: 20081021, end: 20100102
  2. KALETRA [Concomitant]
     Route: 048
     Dates: start: 20081021, end: 20100102
  3. TRUVADA [Concomitant]

REACTIONS (10)
  - MALAISE [None]
  - HYPOTENSION [None]
  - HYPERSENSITIVITY [None]
  - NAUSEA [None]
  - DIARRHOEA [None]
  - RASH [None]
  - CIRCULATORY COLLAPSE [None]
  - URTICARIA [None]
  - VOMITING [None]
  - DIZZINESS [None]
